FAERS Safety Report 8092094-X (Version None)
Quarter: 2012Q1

REPORT INFORMATION
  Report Type: 
  Country: None (occurrence: None)
  Receive Date: 20120131
  Receipt Date: 20120123
  Transmission Date: 20120608
  Serious: Yes (Hospitalization)
  Sender: FDA-Public Use
  Company Number: AU-JNJFOC-20111004413

PATIENT
  Sex: Male
  Weight: 96 kg

DRUGS (6)
  1. INVEGA SUSTENNA [Suspect]
     Route: 030
     Dates: start: 20110829
  2. AMISULPRIDE [Concomitant]
     Dosage: 200MG MANE, 400MG NOCTE
     Route: 048
  3. AMISULPRIDE [Concomitant]
     Route: 048
  4. CLOZAPINE [Concomitant]
     Route: 065
  5. INVEGA SUSTENNA [Suspect]
     Indication: SCHIZOPHRENIA
     Route: 030
  6. QUETIAPINE [Concomitant]
     Route: 065

REACTIONS (6)
  - HOSPITALISATION [None]
  - ABNORMAL BEHAVIOUR [None]
  - HALLUCINATION, AUDITORY [None]
  - INCORRECT DOSE ADMINISTERED [None]
  - OVERDOSE [None]
  - AGITATION [None]
